FAERS Safety Report 8520109-0 (Version None)
Quarter: 2012Q3

REPORT INFORMATION
  Report Type: 
  Country: None (occurrence: None)
  Receive Date: 20120719
  Receipt Date: 20120712
  Transmission Date: 20120928
  Serious: Yes (Death, Hospitalization, Other)
  Sender: FDA-Public Use
  Company Number: US-PAR PHARMACEUTICAL, INC-2012SCPR004503

PATIENT

DRUGS (5)
  1. DOCUSATE SODIUM [Concomitant]
     Indication: PROPHYLAXIS
     Dosage: 100 MG, BID
     Route: 065
  2. OLANZAPINE [Suspect]
     Indication: AGGRESSION
     Dosage: 10 MG, / DAY
     Route: 065
  3. CLOZAPINE [Suspect]
     Indication: PSYCHOTIC DISORDER
     Dosage: UNK, UNKNOWN; INCREASED DOSAGE BY 12.5 MG/DAY
     Route: 065
  4. CLOZAPINE [Suspect]
     Dosage: 100 MG, / DAY
     Route: 065
  5. OLANZAPINE [Suspect]
     Indication: PSYCHOTIC DISORDER
     Dosage: 30 MG, / DAY
     Route: 065

REACTIONS (6)
  - ILEUS PARALYTIC [None]
  - TACHYCARDIA [None]
  - DIVERTICULUM [None]
  - ASPIRATION [None]
  - DEATH [None]
  - HYPOTENSION [None]
